FAERS Safety Report 9223586 (Version 3)
Quarter: 2013Q2

REPORT INFORMATION
  Report Type: Spontaneous
  Country: US (occurrence: US)
  Receive Date: 20130410
  Receipt Date: 20130610
  Transmission Date: 20140414
  Serious: Yes (Death, Hospitalization)
  Sender: FDA-Public Use
  Company Number: US-GLAXOSMITHKLINE-A1019488A

PATIENT
  Sex: Male

DRUGS (1)
  1. PROMACTA [Suspect]
     Indication: LYMPHOCYTIC LEUKAEMIA
     Dosage: 50MG PER DAY
     Route: 048

REACTIONS (4)
  - Death [Fatal]
  - Syncope [Unknown]
  - Dehydration [Unknown]
  - Blood test abnormal [Unknown]
